FAERS Safety Report 23047568 (Version 2)
Quarter: 2023Q4

REPORT INFORMATION
  Report Type: Spontaneous
  Country: US (occurrence: US)
  Receive Date: 20231010
  Receipt Date: 20231019
  Transmission Date: 20240110
  Serious: Yes (Death, Other)
  Sender: FDA-Public Use
  Company Number: US-TAKEDA-2023TUS096508

PATIENT
  Age: 62 Year
  Sex: Female
  Weight: 39.5 kg

DRUGS (4)
  1. ENTYVIO [Suspect]
     Active Substance: VEDOLIZUMAB
     Indication: Crohn^s disease
     Dosage: UNK
     Route: 042
     Dates: start: 2016, end: 20221201
  2. PREDNISONE [Concomitant]
     Active Substance: PREDNISONE
     Indication: Asthma
     Dosage: 10 MILLIGRAM
  3. PREDNISONE [Concomitant]
     Active Substance: PREDNISONE
     Indication: Rheumatoid arthritis
  4. BUDESONIDE [Concomitant]
     Active Substance: BUDESONIDE
     Indication: Crohn^s disease
     Dosage: UNK UNK, QD
     Dates: start: 2023, end: 2023

REACTIONS (8)
  - Progressive multifocal leukoencephalopathy [Fatal]
  - Arthritis bacterial [Unknown]
  - Bursitis infective [Unknown]
  - Diverticulitis [Unknown]
  - Cytomegalovirus oesophagitis [Unknown]
  - Acute kidney injury [Unknown]
  - Pneumoperitoneum [Unknown]
  - Viraemia [Unknown]

NARRATIVE: CASE EVENT DATE: 20230101
